FAERS Safety Report 5800191-1 (Version None)
Quarter: 2008Q3

REPORT INFORMATION
  Report Type: 
  Country: None (occurrence: None)
  Receive Date: 20080702
  Receipt Date: 20080702
  Transmission Date: 20090109
  Serious: No
  Sender: FDA-Public Use
  Company Number: None

PATIENT
  Age: 82 Year
  Sex: Female
  Weight: 56.6996 kg

DRUGS (3)
  1. DIGITEK 0.125MG BERTEK [Suspect]
     Indication: ARRHYTHMIA
     Dosage: ONE TABLET BY MOUTH DAILY
  2. DIGITEK 0.125MG [Suspect]
  3. CARDIZEM CD [Concomitant]

REACTIONS (6)
  - CHEST PAIN [None]
  - FATIGUE [None]
  - HYPOTENSION [None]
  - NAUSEA [None]
  - PHARMACEUTICAL PRODUCT COMPLAINT [None]
  - THERAPEUTIC AGENT TOXICITY [None]
